FAERS Safety Report 19078571 (Version 1)
Quarter: 2021Q1

REPORT INFORMATION
  Report Type: Report from Study
  Country: CO (occurrence: CO)
  Receive Date: 20210331
  Receipt Date: 20210331
  Transmission Date: 20210420
  Serious: Yes (Hospitalization)
  Sender: FDA-Public Use
  Company Number: CO-COLLEGIUM PHARMACEUTICAL, INC.-2021CGM00327

PATIENT
  Age: 63 Year
  Sex: Female

DRUGS (1)
  1. TAPENTADOL [Suspect]
     Active Substance: TAPENTADOL
     Indication: PAIN
     Dosage: 1 DF, EVERY 12 HOURS
     Route: 048
     Dates: end: 20210217

REACTIONS (2)
  - Hyperparathyroidism primary [Unknown]
  - Nausea [Unknown]
